FAERS Safety Report 9787921 (Version 1)
Quarter: 2013Q4

REPORT INFORMATION
  Report Type: Spontaneous
  Country: US (occurrence: None)
  Receive Date: 20131227
  Receipt Date: 20131227
  Transmission Date: 20140711
  Serious: No
  Sender: FDA-Public Use
  Company Number: None

PATIENT
  Age: 89 Year
  Sex: Female

DRUGS (1)
  1. NITROFURANTOIN [Suspect]
     Indication: URINARY TRACT INFECTION
     Dosage: TWO CAPSULES  TWICE DAILY  TAKEN BY MOUTH
     Route: 048
     Dates: start: 20131217, end: 20131218

REACTIONS (11)
  - Palpitations [None]
  - Blood pressure systolic increased [None]
  - Renal pain [None]
  - Diarrhoea [None]
  - Disorientation [None]
  - Fatigue [None]
  - Tremor [None]
  - Balance disorder [None]
  - Dry mouth [None]
  - Rash macular [None]
  - Cough [None]
